FAERS Safety Report 18777938 (Version 1)
Quarter: 2021Q1

REPORT INFORMATION
  Report Type: Report from Study
  Country: BR (occurrence: BR)
  Receive Date: 20210123
  Receipt Date: 20210123
  Transmission Date: 20210419
  Serious: Yes (Other)
  Sender: FDA-Public Use
  Company Number: NVSC2021BR011082

PATIENT
  Age: 69 Year
  Sex: Male

DRUGS (1)
  1. ENTRESTO [Suspect]
     Active Substance: SACUBITRIL\VALSARTAN
     Indication: PRODUCT USED FOR UNKNOWN INDICATION
     Dosage: 1 DF, QD (SACUBITRIL,VALSARTAN? 49/51 MG) (3 MONTHS AGO)
     Route: 065

REACTIONS (5)
  - Nasopharyngitis [Recovered/Resolved]
  - Illness [Recovered/Resolved]
  - Cardiac disorder [Unknown]
  - Influenza [Unknown]
  - Speech disorder [Unknown]

NARRATIVE: CASE EVENT DATE: 20210111
